FAERS Safety Report 20288737 (Version 9)
Quarter: 2024Q3

REPORT INFORMATION
  Report Type: Spontaneous
  Country: CA (occurrence: CA)
  Receive Date: 20220104
  Receipt Date: 20240730
  Transmission Date: 20241017
  Serious: Yes (Other)
  Sender: CELLTRION
  Company Number: CA-CELLTRION INC.-2017CA009737

PATIENT

DRUGS (52)
  1. INFLECTRA [Suspect]
     Active Substance: INFLIXIMAB-DYYB
     Indication: Colitis ulcerative
     Dosage: 432 MG, 0,2,6 WEEKS THEN EVERY 8 WEEKS
     Route: 042
     Dates: start: 20170504, end: 20170606
  2. INFLECTRA [Suspect]
     Active Substance: INFLIXIMAB-DYYB
     Dosage: 860 MG, EVERY 6 WEEKS
     Route: 042
     Dates: start: 20170801, end: 20170801
  3. INFLECTRA [Suspect]
     Active Substance: INFLIXIMAB-DYYB
     Dosage: 860 MG, EVERY 6 WEEKS
     Route: 042
     Dates: start: 20170901
  4. INFLECTRA [Suspect]
     Active Substance: INFLIXIMAB-DYYB
     Dosage: 860 MG, EVERY 6 WEEKS
     Route: 042
     Dates: start: 20180214
  5. INFLECTRA [Suspect]
     Active Substance: INFLIXIMAB-DYYB
     Dosage: 860 MG, EVERY 6 WEEKS
     Route: 042
     Dates: start: 20180327
  6. INFLECTRA [Suspect]
     Active Substance: INFLIXIMAB-DYYB
     Dosage: 860 MG, EVERY 6 WEEKS
     Route: 042
     Dates: start: 20180327
  7. INFLECTRA [Suspect]
     Active Substance: INFLIXIMAB-DYYB
     Dosage: 860 MG, EVERY 6 WEEKS
     Route: 042
     Dates: start: 20180509, end: 20180509
  8. INFLECTRA [Suspect]
     Active Substance: INFLIXIMAB-DYYB
     Dosage: 860 MG, EVERY 6 WEEKS
     Route: 042
     Dates: start: 20180622
  9. INFLECTRA [Suspect]
     Active Substance: INFLIXIMAB-DYYB
     Dosage: 860 MG, EVERY 6 WEEKS
     Route: 042
     Dates: start: 20180802, end: 20180802
  10. INFLECTRA [Suspect]
     Active Substance: INFLIXIMAB-DYYB
     Dosage: 860 MG, EVERY 6 WEEKS
     Route: 042
     Dates: start: 20180913
  11. INFLECTRA [Suspect]
     Active Substance: INFLIXIMAB-DYYB
     Dosage: 860 MG, EVERY 6 WEEKS
     Route: 042
     Dates: start: 20181022
  12. INFLECTRA [Suspect]
     Active Substance: INFLIXIMAB-DYYB
     Dosage: 860 MG, EVERY 6 WEEKS
     Route: 042
     Dates: start: 20181205
  13. INFLECTRA [Suspect]
     Active Substance: INFLIXIMAB-DYYB
     Dosage: 860 MG, EVERY 6 WEEKS
     Route: 042
     Dates: start: 20190114
  14. INFLECTRA [Suspect]
     Active Substance: INFLIXIMAB-DYYB
     Dosage: 860 MG, EVERY 6 WEEKS
     Route: 042
     Dates: start: 20190227
  15. INFLECTRA [Suspect]
     Active Substance: INFLIXIMAB-DYYB
     Dosage: 860 MG, EVERY 6 WEEKS
     Route: 042
     Dates: start: 20190410
  16. INFLECTRA [Suspect]
     Active Substance: INFLIXIMAB-DYYB
     Dosage: 860 MG, EVERY 6 WEEKS
     Route: 042
     Dates: start: 20190926
  17. INFLECTRA [Suspect]
     Active Substance: INFLIXIMAB-DYYB
     Dosage: 860 MG, EVERY 6 WEEKS
     Route: 042
     Dates: start: 20190926
  18. INFLECTRA [Suspect]
     Active Substance: INFLIXIMAB-DYYB
     Dosage: 860 MG, EVERY 6 WEEKS
     Route: 042
     Dates: start: 20191107
  19. INFLECTRA [Suspect]
     Active Substance: INFLIXIMAB-DYYB
     Dosage: 860 MG, EVERY 6 WEEKS
     Route: 042
     Dates: start: 20191218
  20. INFLECTRA [Suspect]
     Active Substance: INFLIXIMAB-DYYB
     Dosage: 860 MG, EVERY 6 WEEKS
     Route: 042
     Dates: start: 20200203
  21. INFLECTRA [Suspect]
     Active Substance: INFLIXIMAB-DYYB
     Dosage: 860 MG, EVERY 6 WEEKS
     Route: 042
     Dates: start: 20200317
  22. INFLECTRA [Suspect]
     Active Substance: INFLIXIMAB-DYYB
     Dosage: 860 MG, EVERY 6 WEEKS
     Route: 042
     Dates: start: 20200428
  23. INFLECTRA [Suspect]
     Active Substance: INFLIXIMAB-DYYB
     Dosage: 860 MG, EVERY 6 WEEKS
     Route: 042
     Dates: start: 20200609
  24. INFLECTRA [Suspect]
     Active Substance: INFLIXIMAB-DYYB
     Dosage: 860 MG, EVERY 6 WEEKS
     Route: 042
     Dates: start: 20200721
  25. INFLECTRA [Suspect]
     Active Substance: INFLIXIMAB-DYYB
     Dosage: 860 MG, EVERY 6 WEEKS
     Route: 042
     Dates: start: 20200904, end: 20200904
  26. INFLECTRA [Suspect]
     Active Substance: INFLIXIMAB-DYYB
     Dosage: 860 MG, EVERY 6 WEEKS
     Route: 042
     Dates: start: 20201123
  27. INFLECTRA [Suspect]
     Active Substance: INFLIXIMAB-DYYB
     Dosage: 860 MG, EVERY 6 WEEKS
     Route: 042
     Dates: start: 20210106, end: 20210106
  28. INFLECTRA [Suspect]
     Active Substance: INFLIXIMAB-DYYB
     Dosage: 860 MG, EVERY 6 WEEKS
     Route: 042
     Dates: start: 20210215, end: 20210215
  29. INFLECTRA [Suspect]
     Active Substance: INFLIXIMAB-DYYB
     Dosage: 860 MG, EVERY 6 WEEKS
     Route: 042
     Dates: start: 20210331
  30. INFLECTRA [Suspect]
     Active Substance: INFLIXIMAB-DYYB
     Dosage: 860 MG, EVERY 6 WEEKS
     Route: 042
     Dates: start: 20210510
  31. INFLECTRA [Suspect]
     Active Substance: INFLIXIMAB-DYYB
     Dosage: 860 MG, EVERY 6 WEEKS
     Route: 042
     Dates: start: 20210510
  32. INFLECTRA [Suspect]
     Active Substance: INFLIXIMAB-DYYB
     Dosage: 860 MG, EVERY 6 WEEKS
     Route: 042
     Dates: start: 20210622
  33. INFLECTRA [Suspect]
     Active Substance: INFLIXIMAB-DYYB
     Dosage: 860 MG, EVERY 6 WEEKS
     Route: 042
     Dates: start: 20210806
  34. INFLECTRA [Suspect]
     Active Substance: INFLIXIMAB-DYYB
     Dosage: 860 MG, EVERY 6 WEEKS
     Route: 042
     Dates: start: 20210916
  35. INFLECTRA [Suspect]
     Active Substance: INFLIXIMAB-DYYB
     Dosage: 860 MG (EVERY 6 WEEKS)
     Route: 042
     Dates: start: 20211029, end: 20211029
  36. INFLECTRA [Suspect]
     Active Substance: INFLIXIMAB-DYYB
     Dosage: 860 MG, EVERY 6 WEEKS (10 MG/KG)
     Route: 042
     Dates: start: 20211220, end: 20211220
  37. INFLECTRA [Suspect]
     Active Substance: INFLIXIMAB-DYYB
     Dosage: 860 MG, EVERY 6 WEEKS
     Route: 042
     Dates: start: 20220216, end: 20220216
  38. INFLECTRA [Suspect]
     Active Substance: INFLIXIMAB-DYYB
     Dosage: 10 MG/KG, EVERY 8 WEEKS
     Route: 042
     Dates: start: 20220606
  39. INFLECTRA [Suspect]
     Active Substance: INFLIXIMAB-DYYB
     Dosage: 10 MG/KG, EVERY 8 WEEKS
     Route: 042
     Dates: start: 20220802
  40. INFLECTRA [Suspect]
     Active Substance: INFLIXIMAB-DYYB
     Dosage: 10 MG/KG, EVERY 8 WEEKS
     Route: 042
     Dates: start: 20230704
  41. INFLECTRA [Suspect]
     Active Substance: INFLIXIMAB-DYYB
     Dosage: 870 MG (10 MG/KG), EVERY 8 WEEKS
     Route: 042
     Dates: start: 20230829
  42. INFLECTRA [Suspect]
     Active Substance: INFLIXIMAB-DYYB
     Dosage: 870 MG (10 MG/KG), EVERY 8 WEEKS
     Route: 042
     Dates: start: 20231024
  43. INFLECTRA [Suspect]
     Active Substance: INFLIXIMAB-DYYB
     Dosage: 10 MG/KG (880MG) EVERY 8 WEEKS
     Route: 042
     Dates: start: 20231219
  44. INFLECTRA [Suspect]
     Active Substance: INFLIXIMAB-DYYB
     Dosage: 10 MG/KG EVERY 8 WEEKS
     Route: 042
     Dates: start: 20240409
  45. INFLECTRA [Suspect]
     Active Substance: INFLIXIMAB-DYYB
     Dosage: 10 MG/KG (870 MG) AFTER 6 WEEKS AND 1 DAY (PRESCRIBED EVERY 8 WEEKS)
     Route: 042
     Dates: start: 20240522
  46. INFLECTRA [Suspect]
     Active Substance: INFLIXIMAB-DYYB
     Dosage: 10 MG/KG (850 MG), EVERY 8 WEEKS
     Route: 042
     Dates: start: 20240719
  47. CLONAZEPAM [Concomitant]
     Active Substance: CLONAZEPAM
     Dosage: 0.5 MG, AS NEEDED
  48. HYDROCORTISONE [Concomitant]
     Active Substance: HYDROCORTISONE\HYDROCORTISONE ACETATE
     Dosage: 1 DF (DOSAGE NOT AVAILABLE)
     Route: 065
  49. IMURAN [Concomitant]
     Active Substance: AZATHIOPRINE
     Dosage: UNK
     Route: 065
  50. IMURAN [Concomitant]
     Active Substance: AZATHIOPRINE
     Dosage: 1 DF, DOSAGE NOT AVAILABLE - UNKNOWN IF ONGOING
     Route: 065
  51. MESALAMINE [Concomitant]
     Active Substance: MESALAMINE
     Dosage: UNK
     Route: 065
  52. MESALAMINE [Concomitant]
     Active Substance: MESALAMINE
     Dosage: 1 DF, DOSAGE NOT AVAILABLE - UNKNOWN IF ONGOING
     Route: 065

REACTIONS (17)
  - Blood pressure systolic increased [Not Recovered/Not Resolved]
  - Blood pressure increased [Not Recovered/Not Resolved]
  - Blood pressure fluctuation [Unknown]
  - Drug ineffective [Recovering/Resolving]
  - Condition aggravated [Recovered/Resolved]
  - Insomnia [Unknown]
  - Middle insomnia [Unknown]
  - Dizziness [Unknown]
  - Skin reaction [Unknown]
  - Poor quality sleep [Unknown]
  - Conjunctivitis [Unknown]
  - Eye irritation [Not Recovered/Not Resolved]
  - Erythema [Not Recovered/Not Resolved]
  - Epistaxis [Recovered/Resolved]
  - Heart rate decreased [Not Recovered/Not Resolved]
  - COVID-19 [Recovered/Resolved]
  - Off label use [Unknown]

NARRATIVE: CASE EVENT DATE: 20170101
